FAERS Safety Report 4813602-5 (Version None)
Quarter: 2005Q4

REPORT INFORMATION
  Report Type: 
  Country: None (occurrence: None)
  Receive Date: 20051028
  Receipt Date: 20050302
  Transmission Date: 20060501
  Serious: No
  Sender: FDA-Public Use
  Company Number: US-GLAXOSMITHKLINE-A0547958A

PATIENT
  Age: 62 Year
  Sex: Female

DRUGS (8)
  1. ADVAIR DISKUS 100/50 [Suspect]
     Indication: ASTHMA
     Dosage: 1PUFF TWICE PER DAY
     Route: 055
     Dates: start: 20040101
  2. COMBIVENT [Concomitant]
  3. ALBUTEROL [Concomitant]
  4. ATENOLOL [Concomitant]
  5. GLUCOPHAGE [Concomitant]
  6. PROZAC [Concomitant]
  7. BUSPAR [Concomitant]
  8. XANAX [Concomitant]

REACTIONS (2)
  - DRUG INEFFECTIVE [None]
  - PHARMACEUTICAL PRODUCT COMPLAINT [None]
